FAERS Safety Report 9879705 (Version 3)
Quarter: 2014Q3

REPORT INFORMATION
  Report Type: Spontaneous
  Country: SE (occurrence: SE)
  Receive Date: 20140206
  Receipt Date: 20140715
  Transmission Date: 20150326
  Serious: Yes (Hospitalization, Congenital Anomaly)
  Sender: FDA-Public Use
  Company Number: SE-ELI_LILLY_AND_COMPANY-SE201401009638

PATIENT
  Sex: Female

DRUGS (8)
  1. XANOR [Concomitant]
     Active Substance: ALPRAZOLAM
     Route: 064
  2. CYMBALTA [Suspect]
     Active Substance: DULOXETINE HYDROCHLORIDE
     Indication: DEPRESSION
     Dosage: 90 MG, QD
     Route: 064
     Dates: start: 2006
  3. CYMBALTA [Suspect]
     Active Substance: DULOXETINE HYDROCHLORIDE
     Indication: DEPRESSION
     Dosage: 90 MG, QD
     Route: 064
     Dates: start: 2006
  4. XANOR [Concomitant]
     Active Substance: ALPRAZOLAM
     Route: 064
  5. IKTORIVIL [Concomitant]
     Active Substance: CLONAZEPAM
     Indication: ANXIETY DISORDER
     Dosage: 0.5 MG, BID
     Route: 064
  6. CYMBALTA [Suspect]
     Active Substance: DULOXETINE HYDROCHLORIDE
     Indication: ANXIETY
  7. IKTORIVIL [Concomitant]
     Active Substance: CLONAZEPAM
     Indication: ANXIETY DISORDER
     Dosage: 0.5 MG, BID
     Route: 064
  8. CYMBALTA [Suspect]
     Active Substance: DULOXETINE HYDROCHLORIDE
     Indication: ANXIETY

REACTIONS (8)
  - Pyloric stenosis [Unknown]
  - Decreased appetite [Not Recovered/Not Resolved]
  - Foetal exposure during pregnancy [Unknown]
  - Large for dates baby [Unknown]
  - Pulmonary oedema neonatal [Unknown]
  - Fatigue [Unknown]
  - Drug withdrawal syndrome neonatal [Unknown]
  - Hepatomegaly [Unknown]
